FAERS Safety Report 7724828-5 (Version None)
Quarter: 2011Q3

REPORT INFORMATION
  Report Type: 
  Country: None (occurrence: None)
  Receive Date: 20110901
  Receipt Date: 20110822
  Transmission Date: 20111222
  Serious: Yes (Other)
  Sender: FDA-Public Use
  Company Number: CA-JNJFOC-20110500574

PATIENT
  Sex: Male
  Weight: 95.26 kg

DRUGS (3)
  1. STELARA [Suspect]
     Indication: PSORIASIS
     Route: 058
     Dates: start: 20100424
  2. STELARA [Suspect]
     Route: 058
     Dates: start: 20110415, end: 20110416
  3. IMITREX [Concomitant]

REACTIONS (7)
  - BLOOD PRESSURE INCREASED [None]
  - DIZZINESS [None]
  - DRUG EFFECT DECREASED [None]
  - CONFUSIONAL STATE [None]
  - VISION BLURRED [None]
  - MENTAL IMPAIRMENT [None]
  - DISTURBANCE IN ATTENTION [None]
